FAERS Safety Report 7634339-3 (Version None)
Quarter: 2011Q3

REPORT INFORMATION
  Report Type: 
  Country: None (occurrence: None)
  Receive Date: 20110725
  Receipt Date: 20110714
  Transmission Date: 20111222
  Serious: Yes (Hospitalization, Other)
  Sender: FDA-Public Use
  Company Number: US-ASTRAZENECA-2010SE06150

PATIENT
  Age: 77 Year
  Sex: Female

DRUGS (2)
  1. NEXIUM [Suspect]
     Route: 048
  2. ATACAND [Suspect]
     Route: 048

REACTIONS (9)
  - FALL [None]
  - INTERVERTEBRAL DISC PROTRUSION [None]
  - DIZZINESS [None]
  - UPPER LIMB FRACTURE [None]
  - STRESS FRACTURE [None]
  - HIP FRACTURE [None]
  - HYPERSENSITIVITY [None]
  - HYPERTENSION [None]
  - INCORRECT DOSE ADMINISTERED [None]
